FAERS Safety Report 8175368-3 (Version None)
Quarter: 2012Q1

REPORT INFORMATION
  Report Type: 
  Country: None (occurrence: None)
  Receive Date: 20120229
  Receipt Date: 20120221
  Transmission Date: 20120608
  Serious: No
  Sender: FDA-Public Use
  Company Number: US-B.I. PHARMACEUTICALS,INC./RIDGEFIELD-2012-BP-03320BP

PATIENT
  Age: 73 Year
  Sex: Female

DRUGS (4)
  1. SPIRIVA [Suspect]
     Indication: CHRONIC OBSTRUCTIVE PULMONARY DISEASE
     Dates: start: 20070101
  2. DURAGESIC-100 [Concomitant]
     Dosage: 75 MCG
  3. ADVAIR DISKUS 100/50 [Concomitant]
  4. OXYCODONE HCL [Concomitant]

REACTIONS (4)
  - BACK DISORDER [None]
  - NECK INJURY [None]
  - VISUAL IMPAIRMENT [None]
  - EYE HAEMORRHAGE [None]
